FAERS Safety Report 15932797 (Version 3)
Quarter: 2019Q1

REPORT INFORMATION
  Report Type: Report from Study
  Country: US (occurrence: US)
  Receive Date: 20190207
  Receipt Date: 20190228
  Transmission Date: 20190417
  Serious: Yes (Hospitalization, Other)
  Sender: FDA-Public Use
  Company Number: US-JNJFOC-20190132047

PATIENT
  Age: 87 Year
  Sex: Male

DRUGS (2)
  1. IMBRUVICA [Suspect]
     Active Substance: IBRUTINIB
     Indication: CHRONIC LYMPHOCYTIC LEUKAEMIA
     Route: 048
     Dates: start: 20190111
  2. IMBRUVICA [Suspect]
     Active Substance: IBRUTINIB
     Indication: CHRONIC LYMPHOCYTIC LEUKAEMIA
     Route: 048
     Dates: start: 20190209

REACTIONS (15)
  - White blood cell count increased [Unknown]
  - Dyspnoea [Unknown]
  - Ascites [Unknown]
  - Depressed mood [Recovering/Resolving]
  - Incorrect dose administered [Unknown]
  - Lethargy [Unknown]
  - Haemoglobin abnormal [Unknown]
  - Platelet count decreased [Recovering/Resolving]
  - Abdominal distension [Unknown]
  - Renal impairment [Unknown]
  - Muscle spasms [Unknown]
  - Throat irritation [Unknown]
  - Epistaxis [Unknown]
  - Fluid retention [Unknown]
  - Off label use [Unknown]

NARRATIVE: CASE EVENT DATE: 20190111
